FAERS Safety Report 16379026 (Version 1)
Quarter: 2019Q2

REPORT INFORMATION
  Report Type: Spontaneous
  Country: IT (occurrence: IT)
  Receive Date: 20190531
  Receipt Date: 20190531
  Transmission Date: 20190711
  Serious: Yes (Other)
  Sender: FDA-Public Use
  Company Number: IT-BAUSCH-BL-2019-015692

PATIENT
  Sex: Female

DRUGS (3)
  1. JANUMET [Suspect]
     Active Substance: METFORMIN HYDROCHLORIDE\SITAGLIPTIN PHOSPHATE
     Indication: DIABETES MELLITUS
     Route: 048
     Dates: start: 2017
  2. JANUVIA [Suspect]
     Active Substance: SITAGLIPTIN PHOSPHATE
     Indication: DIABETES MELLITUS
     Route: 048
  3. METFORMIN [Suspect]
     Active Substance: METFORMIN HYDROCHLORIDE
     Indication: DIABETES MELLITUS
     Route: 065

REACTIONS (3)
  - Diarrhoea [Not Recovered/Not Resolved]
  - Pancreatitis chronic [Not Recovered/Not Resolved]
  - Amylase increased [Not Recovered/Not Resolved]

NARRATIVE: CASE EVENT DATE: 20190521
